FAERS Safety Report 12182752 (Version 8)
Quarter: 2019Q4

REPORT INFORMATION
  Report Type: Spontaneous
  Country: US (occurrence: US)
  Receive Date: 20160316
  Receipt Date: 20191030
  Transmission Date: 20200122
  Serious: Yes (Other)
  Sender: FDA-Public Use
  Company Number: US-PFIZER INC-2016131404

PATIENT
  Age: 71 Year
  Sex: Female

DRUGS (4)
  1. LYRICA [Suspect]
     Active Substance: PREGABALIN
     Indication: POLYNEUROPATHY
     Dosage: UNK, AS NEEDED (CAN TAKE EXTRA DOSE AS NEEDED)
  2. LYRICA [Suspect]
     Active Substance: PREGABALIN
     Indication: SMALL FIBRE NEUROPATHY
     Dosage: 50 MG, 3X/DAY (2 CAPSULES THREE TIMES A DAY / CAN TAKE EXTRA DOSE AS NEEDED, MUST BE 25 MG CAPSULES)
  3. LYRICA [Suspect]
     Active Substance: PREGABALIN
     Indication: NEURALGIA
     Dosage: 25 MG, 4X/DAY
     Dates: start: 2013
  4. LYRICA [Suspect]
     Active Substance: PREGABALIN
     Indication: NEUROPATHY PERIPHERAL
     Dosage: 125 MG, DAILY (25 MG, FIVE TIMES A DAY)
     Route: 048

REACTIONS (3)
  - Off label use [Unknown]
  - Compression fracture [Unknown]
  - Choking [Unknown]

NARRATIVE: CASE EVENT DATE: 2013
